FAERS Safety Report 23555471 (Version 1)
Quarter: 2024Q1

REPORT INFORMATION
  Report Type: Report from Study
  Country: DE (occurrence: DE)
  Receive Date: 20240222
  Receipt Date: 20240222
  Transmission Date: 20240410
  Serious: Yes (Death, Other)
  Sender: FDA-Public Use
  Company Number: DE-009507513-2402DEU003584

PATIENT
  Sex: Male
  Weight: 85 kg

DRUGS (3)
  1. PEMETREXED [Suspect]
     Active Substance: PEMETREXED
     Indication: Non-small cell lung cancer
     Dosage: 956 MILLIGRAM (1ST LINE)
     Route: 065
     Dates: start: 20231204, end: 20231204
  2. CARBOPLATIN [Suspect]
     Active Substance: CARBOPLATIN
     Indication: Non-small cell lung cancer
     Dosage: 575 MILLIGRAM (1ST LINE)
     Route: 065
     Dates: start: 20231204, end: 20231204
  3. PEMBROLIZUMAB [Suspect]
     Active Substance: PEMBROLIZUMAB
     Indication: Non-small cell lung cancer
     Dosage: 200 MILLIGRAM (1ST LINE)
     Route: 065
     Dates: start: 20231114, end: 20231205

REACTIONS (2)
  - Death [Fatal]
  - Disease progression [Fatal]

NARRATIVE: CASE EVENT DATE: 20231223
